FAERS Safety Report 16854382 (Version 1)
Quarter: 2019Q3

REPORT INFORMATION
  Report Type: Spontaneous
  Country: US (occurrence: US)
  Receive Date: 20190926
  Receipt Date: 20190926
  Transmission Date: 20191005
  Serious: No
  Sender: FDA-Public Use
  Company Number: US-BEH-2019106963

PATIENT
  Sex: Female

DRUGS (1)
  1. HIZENTRA [Suspect]
     Active Substance: HUMAN IMMUNOGLOBULIN G
     Indication: POLYNEUROPATHY
     Dosage: 18 GRAM, QW
     Route: 058
     Dates: start: 20190703

REACTIONS (3)
  - No adverse event [Not Recovered/Not Resolved]
  - Infusion site urticaria [Unknown]
  - Product use in unapproved indication [Not Recovered/Not Resolved]
